FAERS Safety Report 24248587 (Version 1)
Quarter: 2024Q3

REPORT INFORMATION
  Report Type: Spontaneous
  Country: JP (occurrence: JP)
  Receive Date: 20240826
  Receipt Date: 20240826
  Transmission Date: 20241016
  Serious: Yes (Life-Threatening, Hospitalization, Other)
  Sender: PFIZER
  Company Number: JP-PFIZER INC-PV202400108613

PATIENT
  Age: 83 Year
  Sex: Female
  Weight: 61.2 kg

DRUGS (21)
  1. ZYVOX [Suspect]
     Active Substance: LINEZOLID
     Indication: Intervertebral discitis
     Dosage: 600 MG, 2X/DAY((AT 08:00 AND 20:00)
     Route: 048
     Dates: start: 20220704, end: 20220722
  2. ZYVOX [Suspect]
     Active Substance: LINEZOLID
     Indication: Osteomyelitis
     Dosage: 600 MG, 2X/DAY
     Route: 048
     Dates: start: 20220823
  3. ZYVOX [Suspect]
     Active Substance: LINEZOLID
     Indication: Muscle abscess
  4. LIMAPROST [Concomitant]
     Active Substance: LIMAPROST
     Dosage: 5 UG, 3X/DAY (AFTER EACH MEAL)
  5. ICOSAPENT ETHYL [Concomitant]
     Active Substance: ICOSAPENT ETHYL
     Dosage: 600 MG, 2X/DAY (AFTER BREAKFAST AND DINNER)
     Dates: end: 20220722
  6. VALPROATE SODIUM [Concomitant]
     Active Substance: VALPROATE SODIUM
     Dosage: 200 MG, 3X/DAY (AFTER EACH MEAL)
  7. SULPIRIDE [Concomitant]
     Active Substance: SULPIRIDE
     Dosage: 50 MG, 3X/DAY (AFTER EACH MEAL)
     Dates: end: 20220714
  8. METHYLCOBALAMIN [Concomitant]
     Active Substance: METHYLCOBALAMIN
     Dosage: 500 UG, 3X/DAY (AFTER EACH MEAL)
     Dates: end: 20220719
  9. LIPITOR [Concomitant]
     Active Substance: ATORVASTATIN CALCIUM
     Dosage: 5 MG, 2X/DAY (AFTER BREAKFAST AND DINNER)
     Dates: end: 20220719
  10. ATORVASTATIN CALCIUM TRIHYDRATE [Concomitant]
     Active Substance: ATORVASTATIN CALCIUM TRIHYDRATE
     Dosage: UNK
     Dates: start: 20220720
  11. MAGNESIUM OXIDE [Concomitant]
     Active Substance: MAGNESIUM OXIDE
     Dosage: 330 MG, 3X/DAY (AFTER  EACH MEAL)
     Dates: end: 20220719
  12. MAGNESIUM OXIDE [Concomitant]
     Active Substance: MAGNESIUM OXIDE
     Dosage: UNK
     Dates: start: 20220720
  13. HERBALS [Concomitant]
     Active Substance: HERBALS
     Dosage: 1 DF, 3X/DAY (AFTER EACH MEAL)
  14. SOLIFENACIN SUCCINATE OD [Concomitant]
     Dosage: 5 MG, 1X/DAY (AFTER DINNER)
     Dates: end: 20220719
  15. VESICARE [Concomitant]
     Active Substance: SOLIFENACIN SUCCINATE
     Dosage: 5 UNK
     Dates: start: 20220720
  16. MINODRONIC ACID NIPRO [Concomitant]
     Dosage: 50 MG, EVERY 4 WEEKS (AT THE TIME OF AWAKENING) (LAST DOSE: 29JUN2022)
  17. CELECOXIB [Concomitant]
     Active Substance: CELECOXIB
     Dosage: 100 MG, 2X/DAY (AFTER BREAKFAST AND DINNER)
     Dates: start: 20220628
  18. REBAMIPIDE [Concomitant]
     Active Substance: REBAMIPIDE
     Dosage: 100 MG, 2X/DAY (AFTER BREAKFAST AND DINNER)
     Dates: start: 20220628
  19. RIFADIN [Concomitant]
     Active Substance: RIFAMPIN
     Dosage: 450 MG (3 TABLETS), 1X/DAY (BEFORE BREAKFAST)
     Dates: start: 20220628
  20. FEXOFENADINE HYDROCHLORIDE [Concomitant]
     Active Substance: FEXOFENADINE HYDROCHLORIDE
     Dosage: 60 MG, 2X/DAY(AFTER BREAKFAST AND DINNER)
     Dates: start: 20220714, end: 20220717
  21. LEVETIRACETAM [Concomitant]
     Active Substance: LEVETIRACETAM
     Dosage: 500 MG, 2X/DAY(AFTER BREAKFAST AND DINNER)
     Dates: start: 20220715

REACTIONS (2)
  - Platelet count decreased [Recovered/Resolved]
  - Anaemia [Recovered/Resolved]

NARRATIVE: CASE EVENT DATE: 20220715
